FAERS Safety Report 18724278 (Version 3)
Quarter: 2021Q2

REPORT INFORMATION
  Report Type: Report from Study
  Country: GB (occurrence: GB)
  Receive Date: 20210111
  Receipt Date: 20210413
  Transmission Date: 20210717
  Serious: Yes (Other)
  Sender: FDA-Public Use
  Company Number: GB-TAKEDA-2021TUS001465

PATIENT
  Age: 83 Year
  Sex: Female

DRUGS (1)
  1. IXAZOMIB [Suspect]
     Active Substance: IXAZOMIB
     Indication: PLASMA CELL MYELOMA
     Dosage: 3 MILLIGRAM
     Route: 048
     Dates: start: 20181219

REACTIONS (9)
  - Neuropathy peripheral [Unknown]
  - Nail cuticle fissure [Not Recovered/Not Resolved]
  - Dry skin [Unknown]
  - Muscle spasms [Unknown]
  - Neutrophil count decreased [Unknown]
  - Fatigue [Unknown]
  - Pain [Recovered/Resolved]
  - Vertigo [Recovered/Resolved]
  - Headache [Recovered/Resolved]

NARRATIVE: CASE EVENT DATE: 20210106
